FAERS Safety Report 18302281 (Version 2)
Quarter: 2020Q4

REPORT INFORMATION
  Report Type: Report from Study
  Country: FR (occurrence: FR)
  Receive Date: 20200923
  Receipt Date: 20201005
  Transmission Date: 20210113
  Serious: Yes (Hospitalization)
  Sender: FDA-Public Use
  Company Number: FR-TAKEDA-2020TUS039712

PATIENT
  Sex: Male

DRUGS (13)
  1. ELIQUIS [Concomitant]
     Active Substance: APIXABAN
     Dosage: UNK
  2. EUPANTOL [Concomitant]
     Active Substance: PANTOPRAZOLE SODIUM
     Dosage: UNK
  3. LOVENOX [Concomitant]
     Active Substance: ENOXAPARIN SODIUM
     Dosage: UNK
  4. PARACETAMOL [Concomitant]
     Active Substance: ACETAMINOPHEN
     Dosage: UNK
  5. PERINDOPRIL [Concomitant]
     Active Substance: PERINDOPRIL
     Dosage: UNK
  6. VEDOLIZUMAB [Suspect]
     Active Substance: VEDOLIZUMAB
     Indication: INFLAMMATORY BOWEL DISEASE
     Dosage: UNK
     Route: 042
     Dates: start: 20190227
  7. CEFAZOLINE [Concomitant]
     Active Substance: CEFAZOLIN SODIUM
     Dosage: UNK
  8. NEFOPAM [Concomitant]
     Active Substance: NEFOPAM
     Dosage: UNK
  9. MORPHINE SULFATE. [Concomitant]
     Active Substance: MORPHINE SULFATE
     Dosage: UNK
  10. TRAMADOL. [Concomitant]
     Active Substance: TRAMADOL
     Dosage: UNK
  11. BIPROFENID [Suspect]
     Active Substance: KETOPROFEN
     Indication: PRODUCT USED FOR UNKNOWN INDICATION
     Dosage: UNK
     Route: 065
  12. BISOPROLOL [Concomitant]
     Active Substance: BISOPROLOL
     Dosage: UNK
  13. LAMALINE                           /00764901/ [Concomitant]
     Active Substance: ACETAMINOPHEN\BELLADONNA LEAF\CAFFEINE\OPIUM
     Dosage: UNK

REACTIONS (3)
  - Osteoarthritis [Recovered/Resolved]
  - Iron deficiency anaemia [Recovered/Resolved]
  - Clostridium difficile infection [Recovered/Resolved]

NARRATIVE: CASE EVENT DATE: 20190920
